FAERS Safety Report 23080319 (Version 1)
Quarter: 2023Q4

REPORT INFORMATION
  Report Type: Spontaneous
  Country: US (occurrence: None)
  Receive Date: 20231018
  Receipt Date: 20231018
  Transmission Date: 20240110
  Serious: Yes (Hospitalization)
  Sender: FDA-Public Use
  Company Number: None

PATIENT
  Age: 66 Year
  Sex: Male
  Weight: 80.74 kg

DRUGS (2)
  1. CEFEPIME HYDROCHLORIDE [Suspect]
     Active Substance: CEFEPIME HYDROCHLORIDE
     Dates: start: 20220917, end: 20221017
  2. VANCOMYCIN HYDROCHLORIDE [Concomitant]
     Active Substance: VANCOMYCIN HYDROCHLORIDE
     Dates: start: 20220917, end: 20221017

REACTIONS (6)
  - Confusional state [None]
  - Sedation [None]
  - Osteomyelitis [None]
  - Blood creatinine increased [None]
  - Mental disorder [None]
  - Acute kidney injury [None]

NARRATIVE: CASE EVENT DATE: 20221017
